FAERS Safety Report 18383579 (Version 2)
Quarter: 2020Q4

REPORT INFORMATION
  Report Type: Spontaneous
  Country: US (occurrence: IE)
  Receive Date: 20201014
  Receipt Date: 20201116
  Transmission Date: 20210114
  Serious: Yes (Death, Hospitalization, Other)
  Sender: FDA-Public Use
  Company Number: US-BAYER-2020-214844

PATIENT
  Age: 68 Year
  Sex: Female

DRUGS (4)
  1. NEXAVAR [Suspect]
     Active Substance: SORAFENIB
     Indication: FOLLICULAR THYROID CANCER
     Dosage: 400 MG, BID (TWICE DAILY)
     Dates: start: 20170425
  2. NEXAVAR [Suspect]
     Active Substance: SORAFENIB
     Indication: METASTASES TO BONE
     Dosage: 200 MG, BID
     Dates: start: 20170428, end: 20170505
  3. RADIOACTIVE IODINE SOLUTION [Concomitant]
     Active Substance: SODIUM IODIDE I-131
  4. PARACETAMOL [Suspect]
     Active Substance: ACETAMINOPHEN
     Indication: PAIN

REACTIONS (37)
  - Liver function test increased [None]
  - Vision blurred [None]
  - Musculoskeletal discomfort [None]
  - Neck pain [None]
  - Abdominal pain upper [None]
  - Dizziness [None]
  - Yellow skin [None]
  - Mobility decreased [None]
  - Urticaria [None]
  - Arthralgia [None]
  - Back pain [None]
  - Nausea [None]
  - Dysphagia [None]
  - Cold sweat [None]
  - Pruritus [None]
  - Joint swelling [None]
  - Pain [None]
  - Vomiting [None]
  - Musculoskeletal stiffness [None]
  - Limb discomfort [None]
  - Acute hepatic failure [Fatal]
  - Headache [None]
  - Speech disorder [None]
  - Pain in extremity [None]
  - Pain in jaw [None]
  - End stage renal disease [None]
  - Surgery [None]
  - Drug interaction [None]
  - Abdominal distension [None]
  - Dyspnoea [None]
  - Chest discomfort [None]
  - Ocular icterus [None]
  - Feeling cold [None]
  - Rash [None]
  - Confusional state [None]
  - Hyperhidrosis [None]
  - Muscle spasms [None]

NARRATIVE: CASE EVENT DATE: 20170430
